FAERS Safety Report 5165866-9 (Version None)
Quarter: 2006Q4

REPORT INFORMATION
  Report Type: 
  Country: None (occurrence: None)
  Receive Date: 20061128
  Receipt Date: 20061113
  Transmission Date: 20070319
  Serious: Yes (Death, Other)
  Sender: FDA-Public Use
  Company Number: GXKR2006ES07346

PATIENT
  Age: 60 Year
  Sex: Male

DRUGS (3)
  1. CIPROFLOXACIN [Suspect]
  2. IRINOTECAN HCL [Suspect]
  3. 5-FLUROURACIL                    (5-FLUOROURACIL) [Suspect]

REACTIONS (11)
  - DEPRESSED LEVEL OF CONSCIOUSNESS [None]
  - DIARRHOEA [None]
  - HYPERGLYCAEMIA [None]
  - HYPOPROTEINAEMIA [None]
  - MULTI-ORGAN FAILURE [None]
  - NEUTROPENIA [None]
  - NIKOLSKY'S SIGN [None]
  - PANCYTOPENIA [None]
  - PSEUDOMONAL BACTERAEMIA [None]
  - RENAL IMPAIRMENT [None]
  - TOXIC EPIDERMAL NECROLYSIS [None]
